FAERS Safety Report 26032166 (Version 1)
Quarter: 2025Q4

REPORT INFORMATION
  Report Type: Spontaneous
  Country: EU (occurrence: EU)
  Receive Date: 20251112
  Receipt Date: 20251112
  Transmission Date: 20260118
  Serious: Yes (Other)
  Sender: SANDOZ
  Company Number: None

PATIENT
  Age: 39 Year
  Sex: Female

DRUGS (1)
  1. TYRUKO [Suspect]
     Active Substance: NATALIZUMAB-SZTN
     Indication: Relapsing-remitting multiple sclerosis
     Dosage: 300 MG,NATALIZUMAB 300 MG EVERY 42?45 DAYS  (EXTENDED INTERVAL DOSING INFUSION  PROTOCOL)
     Route: 042
     Dates: start: 20240821, end: 20250912

REACTIONS (2)
  - Multiple sclerosis [Unknown]
  - Product substitution issue [Unknown]

NARRATIVE: CASE EVENT DATE: 20250401
